FAERS Safety Report 7491852-X (Version None)
Quarter: 2011Q2

REPORT INFORMATION
  Report Type: 
  Country: None (occurrence: None)
  Receive Date: 20110518
  Receipt Date: 20110518
  Transmission Date: 20111010
  Serious: Yes (Hospitalization)
  Sender: FDA-Public Use
  Company Number: None

PATIENT
  Sex: Female
  Weight: 88.18 kg

DRUGS (9)
  1. VITAMIN B COMPLEX CAP [Concomitant]
  2. LORTAB [Concomitant]
  3. PHENERGAN HCL [Concomitant]
  4. ALOXI [Concomitant]
  5. TAXOL [Suspect]
     Dosage: 348 MG
     Dates: end: 20110419
  6. TOPOTECAN [Suspect]
     Dosage: 4.5 MG
     Dates: end: 20110421
  7. DECADRON [Concomitant]
  8. BENADRYL [Concomitant]
  9. ZANTAC [Concomitant]

REACTIONS (4)
  - VARICOSE VEIN [None]
  - LOCAL SWELLING [None]
  - IMPLANT SITE REACTION [None]
  - DEEP VEIN THROMBOSIS [None]
